FAERS Safety Report 8140575-2 (Version None)
Quarter: 2012Q1

REPORT INFORMATION
  Report Type: 
  Country: None (occurrence: None)
  Receive Date: 20120216
  Receipt Date: 20120213
  Transmission Date: 20120608
  Serious: Yes (Hospitalization, Disabling, Other)
  Sender: FDA-Public Use
  Company Number: US-PFIZER INC-2012013937

PATIENT
  Sex: Male
  Weight: 79.365 kg

DRUGS (8)
  1. LYRICA [Suspect]
     Indication: NEUROPATHY PERIPHERAL
     Dosage: 150 MG, 2X/DAY
  2. LYRICA [Suspect]
     Dosage: 75 MG IN THE MORNING, 75 MG IN NOON AND 150 MG AT NIGHT
  3. METFORMIN [Concomitant]
     Indication: DIABETES MELLITUS
     Dosage: 1000 MG, DAILY
  4. SPIRONOLACTONE [Concomitant]
     Dosage: UNK
  5. LYRICA [Suspect]
     Dosage: 75 MG, 4X/DAY
  6. LASIX [Concomitant]
     Dosage: UNK
  7. PLAVIX [Concomitant]
     Indication: CARDIAC DISORDER
     Dosage: 75 MG, DAILY
  8. AMIODARONE [Concomitant]
     Dosage: UNK

REACTIONS (5)
  - CHRONIC OBSTRUCTIVE PULMONARY DISEASE [None]
  - MALAISE [None]
  - HYPOTENSION [None]
  - DIABETES MELLITUS [None]
  - CARDIAC DISORDER [None]
